FAERS Safety Report 8540093-3 (Version None)
Quarter: 2012Q3

REPORT INFORMATION
  Report Type: 
  Country: None (occurrence: None)
  Receive Date: 20120726
  Receipt Date: 20120719
  Transmission Date: 20120928
  Serious: Yes (Life-Threatening, Hospitalization)
  Sender: FDA-Public Use
  Company Number: DE-ROCHE-1091747

PATIENT
  Sex: Male
  Weight: 100 kg

DRUGS (10)
  1. AMLODIPINE [Concomitant]
     Dates: start: 20111208
  2. TORSEMIDE [Concomitant]
     Dates: start: 20101207
  3. MIRCERA [Suspect]
     Indication: NEPHROGENIC ANAEMIA
     Dosage: MOST RECENT DOSE PRIOR TO SAE 06/DEC/2011
     Route: 058
  4. MYCOPHENOLATE MOFETIL [Concomitant]
     Dosage: TOTAL DAILY DOSE 500
     Dates: start: 20110519
  5. DOXAZOSIN MESYLATE [Concomitant]
     Dates: start: 20101130
  6. TACROLIMUS [Concomitant]
     Dates: start: 20100826
  7. MOXONIDIN [Concomitant]
     Dates: start: 20110322
  8. PREDNISOLONE [Concomitant]
     Dates: start: 20101102
  9. VALSARTAN [Concomitant]
     Dates: start: 20110816
  10. ACETYLSALICYLSAURE [Concomitant]
     Dates: start: 20110222

REACTIONS (1)
  - CYTOMEGALOVIRUS ENTERITIS [None]
